FAERS Safety Report 25532602 (Version 1)
Quarter: 2025Q3

REPORT INFORMATION
  Report Type: Spontaneous
  Country: UG (occurrence: UG)
  Receive Date: 20250709
  Receipt Date: 20250709
  Transmission Date: 20251021
  Serious: Yes (Death, Other)
  Sender: BRISTOL-MYERS SQUIBB COMPANY
  Company Number: UG-BRISTOL-MYERS SQUIBB COMPANY-2025-096071

PATIENT
  Age: 85 Year
  Sex: Male

DRUGS (1)
  1. SPRYCEL [Suspect]
     Active Substance: DASATINIB
     Indication: Chronic myeloid leukaemia
     Dosage: 140MG (2 X 70MG TABLETS) PER DAY
     Route: 048

REACTIONS (1)
  - Death [Fatal]
